FAERS Safety Report 4309959-4 (Version None)
Quarter: 2004Q1

REPORT INFORMATION
  Report Type: 
  Country: None (occurrence: None)
  Receive Date: 20040303
  Receipt Date: 20040220
  Transmission Date: 20041129
  Serious: Yes (Hospitalization)
  Sender: FDA-Public Use
  Company Number: JP-BRISTOL-MYERS SQUIBB COMPANY-12515052

PATIENT
  Age: 65 Year
  Sex: Male

DRUGS (4)
  1. MEVALOTIN [Suspect]
     Route: 048
     Dates: start: 20020601, end: 20040122
  2. ADALAT [Concomitant]
     Dates: start: 20020601, end: 20040122
  3. BLOPRESS [Concomitant]
     Dates: start: 20020601, end: 20040122
  4. NITRODERM [Concomitant]
     Dates: end: 20040122

REACTIONS (4)
  - HEPATIC FUNCTION ABNORMAL [None]
  - RENAL IMPAIRMENT [None]
  - RESPIRATORY FAILURE [None]
  - RHABDOMYOLYSIS [None]
